FAERS Safety Report 11374780 (Version 1)
Quarter: 2015Q3

REPORT INFORMATION
  Report Type: Spontaneous
  Country: DE (occurrence: DE)
  Receive Date: 20150813
  Receipt Date: 20150813
  Transmission Date: 20151125
  Serious: No
  Sender: FDA-Public Use
  Company Number: DE-LUPIN PHARMACEUTICALS INC.-2015-02353

PATIENT
  Sex: Male

DRUGS (8)
  1. DESLORATADINE-HORMOSAN [Suspect]
     Active Substance: DESLORATADINE
     Indication: URTICARIA
  2. TRIAMCINOLONACETONID [Concomitant]
     Indication: PRURITUS
  3. TRICLOSAN. [Concomitant]
     Active Substance: TRICLOSAN
     Indication: SKIN DISCOLOURATION
  4. DESLORATADINE-HORMOSAN [Suspect]
     Active Substance: DESLORATADINE
     Indication: PRURITUS
  5. TRICLOSAN. [Concomitant]
     Active Substance: TRICLOSAN
     Indication: PRURITUS
  6. TRIAMCINOLONACETONID [Concomitant]
     Indication: URTICARIA
  7. TRIAMCINOLONACETONID [Concomitant]
     Indication: SKIN DISCOLOURATION
  8. TRICLOSAN. [Concomitant]
     Active Substance: TRICLOSAN
     Indication: URTICARIA

REACTIONS (2)
  - Drug dose omission [Unknown]
  - No adverse event [Unknown]
